FAERS Safety Report 4388753-2 (Version None)
Quarter: 2004Q3

REPORT INFORMATION
  Report Type: 
  Country: None (occurrence: None)
  Receive Date: 20040701
  Receipt Date: 20040604
  Transmission Date: 20050211
  Serious: Yes (Death)
  Sender: FDA-Public Use
  Company Number: 2004/02311

PATIENT
  Age: 75 Year
  Sex: Male

DRUGS (6)
  1. TAGAMET [Suspect]
     Indication: GASTRIC ULCER
     Dosage: 200MG THREE TIMES PER DAY
     Route: 042
     Dates: start: 20020424, end: 20020427
  2. LIPITOR [Concomitant]
     Dates: end: 20020423
  3. RADICUT [Concomitant]
     Dates: start: 20020424, end: 20020428
  4. CEFOTIAM HYDROCHLORIDE [Concomitant]
     Dates: start: 20020424, end: 20020428
  5. ARGATROBAN [Concomitant]
     Dates: start: 20020424, end: 20020427
  6. OMEPRAZOLE [Concomitant]
     Dates: start: 20020427, end: 20020428

REACTIONS (4)
  - DEATH [None]
  - MULTI-ORGAN FAILURE [None]
  - RENAL FAILURE ACUTE [None]
  - RHABDOMYOLYSIS [None]
